FAERS Safety Report 7027959-0 (Version None)
Quarter: 2010Q4

REPORT INFORMATION
  Report Type: 
  Country: None (occurrence: None)
  Receive Date: 20101005
  Receipt Date: 20100922
  Transmission Date: 20110411
  Serious: Yes (Hospitalization)
  Sender: FDA-Public Use
  Company Number: ES-ELI_LILLY_AND_COMPANY-ES201009006480

PATIENT
  Sex: Female

DRUGS (18)
  1. FORTEO [Suspect]
     Indication: OSTEOPOROSIS
     Dosage: 20 UG, DAILY (1/D)
     Route: 058
     Dates: start: 20090701
  2. ARAVA [Concomitant]
     Dosage: UNK, UNKNOWN
     Route: 048
  3. METROTONIN [Concomitant]
     Dosage: UNK, UNKNOWN
     Route: 048
  4. ASPIRIN [Concomitant]
     Dosage: UNK, UNKNOWN
     Route: 048
  5. HIDROFEROL [Concomitant]
     Dosage: UNK, UNKNOWN
     Route: 048
  6. AIRTAL [Concomitant]
     Dosage: UNK, UNKNOWN
     Route: 048
  7. OMEPRAZOLE [Concomitant]
     Dosage: UNK, UNKNOWN
     Route: 048
  8. GOPTEN [Concomitant]
     Dosage: UNK, UNKNOWN
     Route: 048
  9. NEURACEN [Concomitant]
     Dosage: UNK, UNKNOWN
     Route: 048
  10. IBERCAL [Concomitant]
     Dosage: UNK, UNKNOWN
     Route: 048
  11. LEXATIN [Concomitant]
     Dosage: UNK, UNKNOWN
     Route: 048
  12. DACORTIN [Concomitant]
     Dosage: UNK, UNKNOWN
     Route: 048
  13. CARDIL                             /00489702/ [Concomitant]
     Dosage: UNK, UNKNOWN
     Route: 048
  14. SUMIAL [Concomitant]
     Dosage: UNK, UNKNOWN
     Route: 048
  15. ARTRICOL [Concomitant]
     Indication: DRY EYE
     Dosage: UNK, UNKNOWN
     Route: 065
  16. POLASE [Concomitant]
     Indication: DRY EYE
     Dosage: UNK, UNKNOWN
     Route: 065
  17. HYDROMORPHONE HCL [Concomitant]
     Dosage: UNK, UNKNOWN
     Route: 048
  18. GEVATRAN [Concomitant]
     Dosage: UNK, UNKNOWN
     Route: 048

REACTIONS (1)
  - PULMONARY EMBOLISM [None]
